FAERS Safety Report 6434527-8 (Version None)
Quarter: 2009Q4

REPORT INFORMATION
  Report Type: 
  Country: None (occurrence: None)
  Receive Date: 20091110
  Receipt Date: 20091104
  Transmission Date: 20100525
  Serious: Yes (Death)
  Sender: FDA-Public Use
  Company Number: US-GILEAD-2009-0025218

PATIENT
  Sex: Female

DRUGS (10)
  1. LETAIRIS [Suspect]
     Indication: PULMONARY ARTERIAL HYPERTENSION
     Route: 048
     Dates: start: 20091008
  2. REVATIO [Concomitant]
  3. TOPROL-XL [Concomitant]
  4. PAXIL [Concomitant]
  5. REMERON [Concomitant]
  6. MAGNESIUM OXIDE [Concomitant]
  7. SEROQUEL [Concomitant]
  8. NEXIUM [Concomitant]
  9. SYNTHROID [Concomitant]
  10. HYDROXYZINE HCL [Concomitant]

REACTIONS (1)
  - DEATH [None]
